FAERS Safety Report 7283036-5 (Version None)
Quarter: 2011Q1

REPORT INFORMATION
  Report Type: 
  Country: None (occurrence: None)
  Receive Date: 20110209
  Receipt Date: 20101217
  Transmission Date: 20110831
  Serious: Yes (Other)
  Sender: FDA-Public Use
  Company Number: US-BAYER-201015477NA

PATIENT
  Sex: Female
  Weight: 102.4 kg

DRUGS (6)
  1. LEXAPRO [Concomitant]
     Dosage: 10 MG, UNK
  2. SOTALOL HCL [Concomitant]
     Dosage: 80 MG, UNK
     Route: 048
  3. OCELLA [Suspect]
     Indication: PRODUCT USED FOR UNKNOWN INDICATION
     Route: 048
     Dates: start: 20070901, end: 20080601
  4. DILTIAZEM [Concomitant]
     Dosage: 180 MG, UNK
     Route: 048
  5. YASMIN [Suspect]
     Indication: PRODUCT USED FOR UNKNOWN INDICATION
     Route: 048
     Dates: start: 20060201, end: 20070901
  6. ZANTAC [Concomitant]

REACTIONS (5)
  - ARRHYTHMIA [None]
  - SLEEP APNOEA SYNDROME [None]
  - MITRAL VALVE PROLAPSE [None]
  - CHEST PAIN [None]
  - SINUS TACHYCARDIA [None]
